FAERS Safety Report 6246797-X (Version None)
Quarter: 2009Q2

REPORT INFORMATION
  Report Type: 
  Country: None (occurrence: None)
  Receive Date: 20090624
  Receipt Date: 20090624
  Transmission Date: 20091009
  Serious: Yes (Hospitalization)
  Sender: FDA-Public Use
  Company Number: None

PATIENT
  Age: 66 Year
  Sex: Female
  Weight: 52.3 kg

DRUGS (1)
  1. CARTIA 180 MG [Suspect]
     Indication: BLOOD PRESSURE INCREASED
     Dosage: 180 MG 1/DAY ORAL
     Route: 048
     Dates: start: 20090515, end: 20090602

REACTIONS (4)
  - GASTRIC DISORDER [None]
  - RASH [None]
  - SKIN EXFOLIATION [None]
  - URTICARIA [None]
